FAERS Safety Report 9321065 (Version 1)
Quarter: 2013Q2

REPORT INFORMATION
  Report Type: Spontaneous
  Country: US (occurrence: None)
  Receive Date: 20130530
  Receipt Date: 20130530
  Transmission Date: 20140414
  Serious: No
  Sender: FDA-Public Use
  Company Number: None

PATIENT
  Age: 41 Year
  Sex: Female

DRUGS (2)
  1. NICOTINE PATCH [Suspect]
     Indication: SMOKING CESSATION THERAPY
  2. NICOTINE GUM [Suspect]

REACTIONS (1)
  - Drug ineffective [None]
